FAERS Safety Report 12076027 (Version 2)
Quarter: 2016Q1

REPORT INFORMATION
  Report Type: Report from Study
  Country: CA (occurrence: CA)
  Receive Date: 20160215
  Receipt Date: 20160304
  Transmission Date: 20160526
  Serious: Yes (Other)
  Sender: FDA-Public Use
  Company Number: CA-AMGEN-CANSL2016016715

PATIENT
  Age: 54 Year
  Sex: Male

DRUGS (1)
  1. XGEVA [Suspect]
     Active Substance: DENOSUMAB
     Indication: METASTASES TO PROSTATE
     Dosage: 120 MG (1.70 ML), UNK
     Route: 065
     Dates: start: 20151130, end: 201512

REACTIONS (4)
  - Bacterial infection [Unknown]
  - Neutropenia [Unknown]
  - Enteritis infectious [Unknown]
  - Off label use [Unknown]
